FAERS Safety Report 8471776-1 (Version None)
Quarter: 2012Q2

REPORT INFORMATION
  Report Type: 
  Country: None (occurrence: None)
  Receive Date: 20120627
  Receipt Date: 20120601
  Transmission Date: 20120825
  Serious: Yes (Hospitalization)
  Sender: FDA-Public Use
  Company Number: ZA-ROCHE-1081440

PATIENT
  Sex: Female
  Weight: 77 kg

DRUGS (5)
  1. VALPROATE SODIUM [Concomitant]
     Dates: start: 20120522
  2. XELODA [Suspect]
     Indication: PRODUCT USED FOR UNKNOWN INDICATION
     Route: 048
     Dates: start: 20120508, end: 20120516
  3. ZOLEDRONIC ACID [Concomitant]
     Route: 042
     Dates: start: 20120508
  4. GLUCOPHAGE [Concomitant]
  5. CONCOR [Concomitant]

REACTIONS (6)
  - LIP SWELLING [None]
  - MUCOSAL INFLAMMATION [None]
  - LIP HAEMORRHAGE [None]
  - CHEILITIS [None]
  - LIP INFECTION [None]
  - GASTROINTESTINAL INFLAMMATION [None]
